FAERS Safety Report 15327837 (Version 1)
Quarter: 2018Q3

REPORT INFORMATION
  Report Type: Spontaneous
  Country: US (occurrence: US)
  Receive Date: 20180828
  Receipt Date: 20180828
  Transmission Date: 20181010
  Serious: No
  Sender: FDA-Public Use
  Company Number: US-ROCHE-2119414

PATIENT
  Sex: Male
  Weight: 77.18 kg

DRUGS (5)
  1. LEVOTHYROXINE. [Concomitant]
     Active Substance: LEVOTHYROXINE
     Dosage: ONGOING: UNKNOWN
     Route: 048
     Dates: start: 20171201
  2. VITAMIN C [Concomitant]
     Active Substance: ASCORBIC ACID
     Dosage: ONGOING: UNKNOWN
     Route: 048
     Dates: start: 20180108
  3. DRISDOL [Concomitant]
     Active Substance: ERGOCALCIFEROL
     Dosage: ONGOING: UNKNOWN
     Route: 048
     Dates: start: 20180108
  4. ALECENSA [Suspect]
     Active Substance: ALECTINIB HYDROCHLORIDE
     Indication: LUNG NEOPLASM MALIGNANT
     Dosage: TAKE 4 CAPSULES BY MOUTH
     Route: 048
     Dates: start: 20171205
  5. ENOXAPARIN [Concomitant]
     Active Substance: ENOXAPARIN
     Dosage: ONGOING: UNKNOWN
     Route: 065
     Dates: start: 20171201

REACTIONS (1)
  - Dizziness [Unknown]
